FAERS Safety Report 16571587 (Version 1)
Quarter: 2019Q3

REPORT INFORMATION
  Report Type: Spontaneous
  Country: US (occurrence: US)
  Receive Date: 20190713
  Receipt Date: 20190713
  Transmission Date: 20191004
  Serious: No
  Sender: FDA-Public Use
  Company Number: None

PATIENT
  Age: 31 Year
  Sex: Male
  Weight: 148.5 kg

DRUGS (1)
  1. VIVITROL [Suspect]
     Active Substance: NALTREXONE
     Indication: DRUG DEPENDENCE
     Route: 008
     Dates: start: 20170708, end: 20170808

REACTIONS (3)
  - Swelling [None]
  - Skin texture abnormal [None]
  - Pain [None]

NARRATIVE: CASE EVENT DATE: 20170901
